FAERS Safety Report 6703269-3 (Version None)
Quarter: 2010Q2

REPORT INFORMATION
  Report Type: 
  Country: None (occurrence: None)
  Receive Date: 20100430
  Receipt Date: 20100416
  Transmission Date: 20101027
  Serious: Yes (Hospitalization)
  Sender: FDA-Public Use
  Company Number: US-RANBAXY-2010US-33220

PATIENT

DRUGS (6)
  1. GANCICLOVIR [Suspect]
     Indication: ANTIVIRAL PROPHYLAXIS
     Dosage: 500 MG, TID
     Route: 048
     Dates: start: 20071212, end: 20080402
  2. MARIBAVIR PLACEBO [Suspect]
     Indication: ANTIVIRAL PROPHYLAXIS
     Dosage: 100 MG, BID
     Route: 048
     Dates: start: 20071211, end: 20080402
  3. ACYCLOVIR PLACEBO TABLETS [Suspect]
     Indication: ANTIVIRAL PROPHYLAXIS
     Dosage: 400 MG, BID
     Route: 048
     Dates: start: 20071212, end: 20080402
  4. PREDNISONE [Concomitant]
     Indication: PROPHYLAXIS
     Route: 065
  5. ASPIRIN [Concomitant]
     Indication: THROMBOSIS PROPHYLAXIS
     Route: 065
  6. PROGRAF [Concomitant]
     Indication: PROPHYLAXIS AGAINST TRANSPLANT REJECTION
     Route: 065

REACTIONS (2)
  - EPSTEIN-BARR VIRUS INFECTION [None]
  - MONONUCLEOSIS SYNDROME [None]
